FAERS Safety Report 16665153 (Version 1)
Quarter: 2019Q3

REPORT INFORMATION
  Report Type: Spontaneous
  Country: CN (occurrence: CN)
  Receive Date: 20190803
  Receipt Date: 20190803
  Transmission Date: 20191004
  Serious: Yes (Other)
  Sender: FDA-Public Use
  Company Number: CN-DRREDDYS-GPV/CHN/19/0112737

PATIENT
  Age: 66 Year
  Sex: Male
  Weight: 67 kg

DRUGS (1)
  1. OLANZAPINE. [Suspect]
     Active Substance: OLANZAPINE
     Indication: MENTAL DISORDER
     Dosage: EVERY NIGHT
     Route: 048
     Dates: start: 20181013, end: 20190717

REACTIONS (1)
  - Granulocytopenia [Recovering/Resolving]

NARRATIVE: CASE EVENT DATE: 20190615
